FAERS Safety Report 17021955 (Version 1)
Quarter: 2019Q4

REPORT INFORMATION
  Report Type: Spontaneous
  Country: DK (occurrence: DK)
  Receive Date: 20191112
  Receipt Date: 20191112
  Transmission Date: 20200122
  Serious: No
  Sender: FDA-Public Use
  Company Number: DK-JAZZ-2019-DK-014086

PATIENT
  Age: 2 Year
  Sex: Male

DRUGS (13)
  1. PROMETHAZINE [Concomitant]
     Active Substance: PROMETHAZINE HYDROCHLORIDE
  2. PHENOBARBITAL. [Concomitant]
     Active Substance: PHENOBARBITAL
  3. RISPERIDONE. [Concomitant]
     Active Substance: RISPERIDONE
  4. MORPHINE [Concomitant]
     Active Substance: MORPHINE
  5. PROPOFOL. [Concomitant]
     Active Substance: PROPOFOL
  6. CLONIDINE. [Concomitant]
     Active Substance: CLONIDINE
     Dosage: UNK
  7. LEVETIRACETAM. [Concomitant]
     Active Substance: LEVETIRACETAM
     Dosage: UNK
  8. KETAMINE [Concomitant]
     Active Substance: KETAMINE
  9. HALOPERIDOL. [Concomitant]
     Active Substance: HALOPERIDOL
  10. THIOPENTAL [Concomitant]
     Active Substance: THIOPENTAL
  11. XYREM [Suspect]
     Active Substance: SODIUM OXYBATE
     Indication: NARCOLEPSY
     Dosage: 2 MG,
     Route: 065
  12. LEVOMEPROMAZINE [Concomitant]
     Active Substance: LEVOMEPROMAZINE
     Dosage: UNK
  13. MIDAZOLAM [Concomitant]
     Active Substance: MIDAZOLAM HYDROCHLORIDE

REACTIONS (1)
  - Intentional product use issue [Unknown]
